FAERS Safety Report 17842169 (Version 2)
Quarter: 2020Q2

REPORT INFORMATION
  Report Type: Spontaneous
  Country: CA (occurrence: CA)
  Receive Date: 20200529
  Receipt Date: 20200620
  Transmission Date: 20200714
  Serious: Yes (Death, Life-Threatening, Hospitalization)
  Sender: FDA-Public Use
  Company Number: CA-TEVA-2020-CA-1240963

PATIENT
  Age: 78 Year
  Sex: Male
  Weight: 53 kg

DRUGS (15)
  1. EX-LAX REGULAR STRENGTH STIMULANT LAXATIVE [Concomitant]
     Active Substance: SENNOSIDES
  2. LASIX [Concomitant]
     Active Substance: FUROSEMIDE
  3. METHOTREXATE. [Concomitant]
     Active Substance: METHOTREXATE
  4. FENTANYL CITRATE. [Suspect]
     Active Substance: FENTANYL CITRATE
     Indication: AGITATION
     Dosage: 75 MICROGRAM DAILY;
     Route: 042
  5. ATORVASTATIN CALCIUM. [Concomitant]
     Active Substance: ATORVASTATIN CALCIUM
  6. ROCURONIUM [Concomitant]
     Active Substance: ROCURONIUM BROMIDE
  7. METOPROLOL. [Concomitant]
     Active Substance: METOPROLOL
  8. FENTANYL CITRATE. [Suspect]
     Active Substance: FENTANYL CITRATE
     Indication: COUGH
     Route: 042
  9. COUMADIN [Concomitant]
     Active Substance: WARFARIN SODIUM
  10. FLEET ENEMA [Concomitant]
     Active Substance: SODIUM PHOSPHATE, DIBASIC\SODIUM PHOSPHATE, MONOBASIC
  11. FENTANYL CITRATE. [Suspect]
     Active Substance: FENTANYL CITRATE
     Indication: NON-CARDIAC CHEST PAIN
     Route: 042
  12. FENTANYL CITRATE. [Suspect]
     Active Substance: FENTANYL CITRATE
     Indication: BACK PAIN
     Route: 042
  13. HALDOL [Concomitant]
     Active Substance: HALOPERIDOL
  14. VERSED [Concomitant]
     Active Substance: MIDAZOLAM HYDROCHLORIDE
  15. ALTACE [Concomitant]
     Active Substance: RAMIPRIL

REACTIONS (21)
  - Decreased appetite [Fatal]
  - Pneumonia [Fatal]
  - Vision blurred [Fatal]
  - Coagulopathy [Fatal]
  - Restlessness [Fatal]
  - Somnolence [Fatal]
  - Urine output decreased [Fatal]
  - Chromaturia [Fatal]
  - Dyspnoea [Fatal]
  - Endotracheal intubation [Fatal]
  - Pyrexia [Fatal]
  - Pneumothorax [Fatal]
  - Sepsis [Fatal]
  - Agitation [Fatal]
  - Memory impairment [Fatal]
  - Slow response to stimuli [Fatal]
  - Thoracic cavity drainage [Fatal]
  - Biopsy liver [Fatal]
  - Asthenia [Fatal]
  - Disorientation [Fatal]
  - Nephropathy [Fatal]
